FAERS Safety Report 15111294 (Version 2)
Quarter: 2018Q3

REPORT INFORMATION
  Report Type: Spontaneous
  Country: US (occurrence: US)
  Receive Date: 20180705
  Receipt Date: 20180723
  Transmission Date: 20181010
  Serious: No
  Sender: FDA-Public Use
  Company Number: US-SA-2018SA171524

PATIENT
  Age: 81 Year
  Sex: Female

DRUGS (2)
  1. LANTUS [Suspect]
     Active Substance: INSULIN GLARGINE
     Indication: URINARY TRACT DISORDER
     Dosage: 16 U, QAM
     Route: 051
     Dates: start: 201506
  2. LANTUS [Suspect]
     Active Substance: INSULIN GLARGINE
     Dosage: 28 UNK QHS
     Route: 051

REACTIONS (2)
  - Blood glucose decreased [Unknown]
  - Product quality issue [Unknown]
